FAERS Safety Report 26046598 (Version 1)
Quarter: 2025Q4

REPORT INFORMATION
  Report Type: Spontaneous
  Country: US (occurrence: US)
  Receive Date: 20251114
  Receipt Date: 20251114
  Transmission Date: 20260118
  Serious: No
  Sender: OPTINOSE INC
  Company Number: US-OptiNose US, Inc-2025OPT000002

PATIENT
  Sex: Female

DRUGS (2)
  1. XHANCE [Suspect]
     Active Substance: FLUTICASONE PROPIONATE
     Indication: Sinusitis
     Dosage: 2 SPRAYS BID, 372 MICROGRAM, BID
     Route: 045
     Dates: end: 20241202
  2. DEVICE [Suspect]
     Active Substance: DEVICE
     Indication: Sinusitis
     Dosage: UNK UNK

REACTIONS (3)
  - Disease recurrence [Recovered/Resolved]
  - Therapy interrupted [Unknown]
  - Off label use [Not Recovered/Not Resolved]
